FAERS Safety Report 5700517-3 (Version None)
Quarter: 2008Q2

REPORT INFORMATION
  Report Type: 
  Country: None (occurrence: None)
  Receive Date: 20080408
  Receipt Date: 20080408
  Transmission Date: 20081010
  Serious: No
  Sender: FDA-Public Use
  Company Number: None

PATIENT
  Sex: Male
  Weight: 65.7716 kg

DRUGS (1)
  1. LEVULAN [Suspect]
     Indication: ACTINIC KERATOSIS
     Dosage: TOPICAL APPLICATION ONCE  TOP
     Route: 061
     Dates: start: 20060113, end: 20060113

REACTIONS (1)
  - CEREBROVASCULAR ACCIDENT [None]
